FAERS Safety Report 4512969-5 (Version None)
Quarter: 2004Q4

REPORT INFORMATION
  Report Type: 
  Country: None (occurrence: None)
  Receive Date: 20041124
  Receipt Date: 20041124
  Transmission Date: 20050328
  Serious: Yes (Other)
  Sender: FDA-Public Use
  Company Number: None

PATIENT
  Age: 17 Year
  Sex: Male
  Weight: 85.8 kg

DRUGS (1)
  1. AZATHIOPRINE - GENERIC [Suspect]
     Indication: CROHN'S DISEASE

REACTIONS (1)
  - DRUG LEVEL CHANGED [None]
